FAERS Safety Report 8016841-8 (Version None)
Quarter: 2012Q1

REPORT INFORMATION
  Report Type: 
  Country: None (occurrence: None)
  Receive Date: 20120102
  Receipt Date: 20111221
  Transmission Date: 20120608
  Serious: Yes (Hospitalization)
  Sender: FDA-Public Use
  Company Number: JP-NOVOPROD-341817

PATIENT

DRUGS (5)
  1. METFORMIN HCL [Concomitant]
     Dosage: 750 MG, QD
     Route: 048
     Dates: start: 20110420, end: 20111125
  2. CANDESARTAN CILEXETIL [Concomitant]
     Dosage: 8 MG, QD
     Route: 048
     Dates: end: 20111125
  3. VICTOZA [Suspect]
     Indication: TYPE 2 DIABETES MELLITUS
     Dosage: 0.9 MG, QD
     Route: 058
     Dates: start: 20110923
  4. BETAXOLOL HCL [Concomitant]
     Dosage: 5 MG, QD
     Route: 048
     Dates: end: 20111125
  5. PRAVASTATIN SODIUM [Concomitant]
     Dosage: 10 MG, QD
     Route: 048
     Dates: end: 20111125

REACTIONS (1)
  - PANCREATITIS ACUTE [None]
